FAERS Safety Report 9741720 (Version 2)
Quarter: 2013Q4

REPORT INFORMATION
  Report Type: Spontaneous
  Country: US (occurrence: US)
  Receive Date: 20131210
  Receipt Date: 20131210
  Transmission Date: 20140711
  Serious: Yes (Other)
  Sender: FDA-Public Use
  Company Number: US-BEH-2011028717

PATIENT
  Age: 20 Year
  Sex: Female
  Weight: 69 kg

DRUGS (50)
  1. HIZENTRA [Suspect]
     Dosage: 50 ML VIA 3 SITES OVER 1 HOUR 45 MINUTES
     Route: 058
     Dates: start: 20100903
  2. HIZENTRA [Suspect]
     Route: 058
  3. HIZENTRA [Suspect]
     Dosage: 2 GM 10 ML VIAL
     Route: 058
  4. HIZENTRA [Suspect]
     Dosage: 2 GM 10 ML VIAL
     Route: 058
  5. HIZENTRA [Suspect]
     Dosage: 2 GM 10 ML VIAL
     Route: 058
  6. HIZENTRA [Suspect]
     Dosage: 2 GM 10 ML VIAL
     Route: 058
  7. HIZENTRA [Suspect]
     Dosage: 2 GM 10 ML VIAL
     Route: 058
  8. HIZENTRA [Suspect]
     Indication: IMMUNODEFICIENCY
     Dosage: 2 GM 10 ML VIAL
     Route: 058
  9. HIZENTRA [Suspect]
     Dosage: 4 GM 20 ML VIAL
     Route: 058
  10. HIZENTRA [Suspect]
     Dosage: 2 GM 10 ML VIAL
     Route: 058
  11. HIZENTRA [Suspect]
     Route: 058
  12. HIZENTRA [Suspect]
     Indication: IMMUNODEFICIENCY COMMON VARIABLE
     Dosage: 4 GM 20 ML VIAL
     Route: 058
  13. HIZENTRA [Suspect]
     Indication: HYPOTHYROIDISM
     Dosage: 4 GM 20 ML VIAL
     Route: 058
  14. HIZENTRA [Suspect]
     Indication: RHINITIS ALLERGIC
     Dosage: 4 GM 20 ML VIAL
     Route: 058
  15. HIZENTRA [Suspect]
     Dosage: 4 GM 20 ML VIAL
     Route: 058
  16. HIZENTRA [Suspect]
     Dosage: 4 GM 20 ML VIAL
     Route: 058
  17. HIZENTRA [Suspect]
     Dosage: 4 GM 20 ML VIAL
     Route: 058
  18. HIZENTRA [Suspect]
     Dosage: OVER 0.75-2 HOURS
     Route: 058
  19. CLINDAMYCIN [Concomitant]
  20. CEFTIN [Concomitant]
  21. CYMBALTA [Concomitant]
  22. OMEPRAZOLE [Concomitant]
  23. RITALIN [Concomitant]
  24. NEO-MED NASAL [Concomitant]
     Route: 045
  25. NEURONTIN [Concomitant]
  26. PULMICORT [Concomitant]
  27. ATROVENT [Concomitant]
  28. SPIRIVA [Concomitant]
  29. FISH OIL [Concomitant]
  30. ACIDOPHILUS [Concomitant]
  31. LACTAID [Concomitant]
  32. CALCIUM [Concomitant]
  33. ESTER C [Concomitant]
  34. CRANBERRY [Concomitant]
  35. XOPENEX [Concomitant]
  36. LEVOTHYROXINE [Concomitant]
  37. VITAMIN D [Concomitant]
  38. MIGRANAL [Concomitant]
  39. ULTRAM [Concomitant]
  40. SINGULAIR [Concomitant]
  41. MULTIVITAMIN [Concomitant]
  42. LUNESTA [Concomitant]
  43. LYBREL [Concomitant]
  44. ACETAMINOPHEN [Concomitant]
  45. TYLENOL [Concomitant]
  46. DIPHENHYDRAMINE [Concomitant]
  47. EPIPEN [Concomitant]
  48. ZANTAC [Concomitant]
  49. ZYRTEC [Concomitant]
  50. FROVA [Concomitant]

REACTIONS (9)
  - Meningitis viral [Unknown]
  - Sinusitis [Not Recovered/Not Resolved]
  - Headache [Unknown]
  - Dyspnoea [Unknown]
  - Wheezing [Unknown]
  - Fatigue [Unknown]
  - Paranasal sinus hypersecretion [Not Recovered/Not Resolved]
  - Facial pain [Not Recovered/Not Resolved]
  - Pyrexia [Not Recovered/Not Resolved]
